FAERS Safety Report 5411949-5 (Version None)
Quarter: 2007Q3

REPORT INFORMATION
  Report Type: 
  Country: None (occurrence: None)
  Receive Date: 20070813
  Receipt Date: 20070808
  Transmission Date: 20080115
  Serious: Yes (Other)
  Sender: FDA-Public Use
  Company Number: DEWYE147008AUG07

PATIENT
  Sex: Female

DRUGS (2)
  1. VENLAFAXINE HCL [Suspect]
     Route: 048
     Dates: start: 20070805
  2. QUILONUM [Suspect]
     Dosage: 1.5 TABLETS/D
     Route: 048
     Dates: start: 20050801

REACTIONS (3)
  - DRUG ABUSER [None]
  - HYPERHIDROSIS [None]
  - LOCAL SWELLING [None]
